FAERS Safety Report 4874639-3 (Version None)
Quarter: 2006Q1

REPORT INFORMATION
  Report Type: 
  Country: None (occurrence: None)
  Receive Date: 20060106
  Receipt Date: 20050208
  Transmission Date: 20060701
  Serious: Yes (Hospitalization, Disabling, Other)
  Sender: FDA-Public Use
  Company Number: US-MERCK-0502USA01077

PATIENT
  Age: 49 Year
  Sex: Male
  Weight: 82 kg

DRUGS (1)
  1. VIOXX [Suspect]
     Indication: ARTHRITIS
     Route: 048

REACTIONS (10)
  - BLINDNESS UNILATERAL [None]
  - CARDIOVASCULAR DISORDER [None]
  - CAROTID ARTERY OCCLUSION [None]
  - CEREBROVASCULAR ACCIDENT [None]
  - CORONARY ARTERY DISEASE [None]
  - COUGH [None]
  - EXTRAOCULAR MUSCLE PARESIS [None]
  - OBSTRUCTION [None]
  - TENDERNESS [None]
  - UPPER RESPIRATORY TRACT CONGESTION [None]
